FAERS Safety Report 9330271 (Version 2)
Quarter: 2014Q1

REPORT INFORMATION
  Report Type: Spontaneous
  Country: US (occurrence: US)
  Receive Date: 20130605
  Receipt Date: 20140113
  Transmission Date: 20141002
  Serious: Yes (Death)
  Sender: FDA-Public Use
  Company Number: US-ASTRAZENECA-2012SE86349

PATIENT
  Age: 54 Year
  Sex: Male
  Weight: 78.5 kg

DRUGS (16)
  1. NEXIUM [Suspect]
     Route: 048
     Dates: start: 200603, end: 201206
  2. NEXIUM [Suspect]
     Route: 048
     Dates: start: 20060315
  3. NEXIUM [Suspect]
     Route: 048
  4. KLOR-CON [Concomitant]
     Dates: start: 20051115
  5. KLOR-CON [Concomitant]
     Dates: start: 20100614
  6. NITROQUICK [Concomitant]
     Dates: start: 20051226
  7. ISOSORB MONO [Concomitant]
     Dates: start: 20051226
  8. FUROSEMIDE [Concomitant]
     Dates: start: 20051226
  9. METOPROL TAR [Concomitant]
     Dates: start: 20051226
  10. CADUET [Concomitant]
     Dosage: 5 MG/1
     Dates: start: 20060330
  11. GABAPENTIN [Concomitant]
     Dates: start: 20100614
  12. GABAPENTIN [Concomitant]
     Dates: start: 20100614
  13. LEXAPRO [Concomitant]
     Dates: start: 20100614
  14. ATIVAN [Concomitant]
     Dates: start: 20100614
  15. BYSTOLIC [Concomitant]
     Dates: start: 20100614
  16. ZETIA [Concomitant]
     Dates: start: 20100614

REACTIONS (6)
  - Injury [Fatal]
  - Road traffic accident [Fatal]
  - Osteoporosis [Unknown]
  - Bone disorder [Unknown]
  - Ankle fracture [Unknown]
  - Multiple fractures [Unknown]
